FAERS Safety Report 23918289 (Version 1)
Quarter: 2024Q2

REPORT INFORMATION
  Report Type: Spontaneous
  Country: US (occurrence: US)
  Receive Date: 20240530
  Receipt Date: 20240530
  Transmission Date: 20240716
  Serious: No
  Sender: FDA-Public Use
  Company Number: US-HALEON-2178711

PATIENT

DRUGS (1)
  1. ABREVA [Suspect]
     Active Substance: DOCOSANOL
     Dosage: EXPDATE:202601
     Route: 065

REACTIONS (3)
  - Oral herpes [Recovering/Resolving]
  - Condition aggravated [Recovering/Resolving]
  - Product complaint [Unknown]
